FAERS Safety Report 4316110-3 (Version None)
Quarter: 2004Q1

REPORT INFORMATION
  Report Type: 
  Country: None (occurrence: None)
  Receive Date: 20040310
  Receipt Date: 20020617
  Transmission Date: 20041129
  Serious: Yes (Hospitalization)
  Sender: FDA-Public Use
  Company Number: 30018684-01G19G43-1

PATIENT
  Age: 34 Year
  Sex: Male

DRUGS (14)
  1. EXTRANEAL [Suspect]
     Dosage: 7.5% ICODEXTRIN 2L QD IP
     Route: 033
     Dates: end: 20020221
  2. EXTRANEAL [Suspect]
     Dosage: 7.5% ICODEXTRIN 2L QD IP
     Route: 033
     Dates: end: 20020221
  3. EXTRANEAL [Suspect]
     Dosage: 7.5% ICODEXTRIN 2L QD IP
     Route: 033
     Dates: end: 20020221
  4. RAMIPRIL [Concomitant]
  5. SORTIS [Concomitant]
  6. PANTOZOL (PANTOPRAZOLE SODIUM) [Concomitant]
  7. ARANESP [Concomitant]
  8. FERRO DUODENAL  ^SANOL^  (FERROGLYCINE SULFATE COMPLEX) [Concomitant]
  9. CALCIUM CARBONATE (CALCIUM CARBONATE) [Concomitant]
  10. ANTIPHOSPHAT [Concomitant]
  11. L-THYROXIN-NATRIUM (LEVOTHYROXINE SODIUM) [Concomitant]
  12. VITARENAL [Concomitant]
  13. CORENAL [Concomitant]
  14. MADOPAR (LEVODOPA/BENSARAZIDE HYDROCHLORIDE) [Concomitant]

REACTIONS (3)
  - INFUSION SITE PAIN [None]
  - PERITONEAL FLUID ANALYSIS ABNORMAL [None]
  - PYREXIA [None]
